FAERS Safety Report 5171160-2 (Version None)
Quarter: 2006Q4

REPORT INFORMATION
  Report Type: 
  Country: None (occurrence: None)
  Receive Date: 20061206
  Receipt Date: 20061206
  Transmission Date: 20070319
  Serious: Yes (Death)
  Sender: FDA-Public Use
  Company Number: None

PATIENT
  Age: 14 Year
  Sex: Female
  Weight: 59.8748 kg

DRUGS (2)
  1. CONCERTA [Suspect]
     Indication: ATTENTION DEFICIT/HYPERACTIVITY DISORDER
     Dosage: 1 TABLET @ 7 A.M.  ONCE DAILY PO
     Route: 048
     Dates: start: 20061031, end: 20061108
  2. DAYTRANA [Suspect]
     Indication: ATTENTION DEFICIT/HYPERACTIVITY DISORDER
     Dosage: 1 PATCH @ 7 A.M. - LEAVE 9 HRS. , ONCE DAILY TRANSDERMAL
     Route: 062
     Dates: start: 20060925, end: 20061030

REACTIONS (2)
  - COMPLETED SUICIDE [None]
  - SKIN IRRITATION [None]
